FAERS Safety Report 6175961-3 (Version None)
Quarter: 2009Q2

REPORT INFORMATION
  Report Type: 
  Country: None (occurrence: None)
  Receive Date: 20090501
  Receipt Date: 20090427
  Transmission Date: 20091009
  Serious: Yes (Death)
  Sender: FDA-Public Use
  Company Number: FR-ASTRAZENECA-2001CG00378

PATIENT
  Age: 90 Year
  Sex: Female
  Weight: 50 kg

DRUGS (6)
  1. NAROPIN [Suspect]
     Indication: FEMORAL NECK FRACTURE
     Route: 050
     Dates: start: 20001230, end: 20001230
  2. SOTALEX [Concomitant]
     Indication: VENTRICULAR FIBRILLATION
  3. NITRODEX [Concomitant]
     Indication: MYOCARDIAL ISCHAEMIA
  4. VASTAREL [Concomitant]
     Indication: MYOCARDIAL ISCHAEMIA
  5. PRAXILENE [Concomitant]
     Indication: DEMENTIA
  6. LORAZEPAM [Concomitant]
     Indication: DEMENTIA

REACTIONS (5)
  - BRADYCARDIA [None]
  - CARDIAC ARREST [None]
  - CONFUSIONAL STATE [None]
  - DRUG TOXICITY [None]
  - ELECTROCARDIOGRAM QT PROLONGED [None]
